FAERS Safety Report 7631455-7 (Version None)
Quarter: 2011Q3

REPORT INFORMATION
  Report Type: 
  Country: None (occurrence: None)
  Receive Date: 20110725
  Receipt Date: 20110712
  Transmission Date: 20111222
  Serious: Yes (Other)
  Sender: FDA-Public Use
  Company Number: CA-ELI_LILLY_AND_COMPANY-CA201107003012

PATIENT
  Sex: Male

DRUGS (7)
  1. IMOVANE [Concomitant]
  2. FLOVENT [Concomitant]
  3. LITHIUM CARBONATE [Concomitant]
  4. TEGRETOL [Concomitant]
  5. CLONAZEPAM [Concomitant]
  6. ZYPREXA [Suspect]
     Indication: BIPOLAR DISORDER
     Dosage: 10 MG, EACH EVENING
  7. ZYPREXA [Suspect]
     Dosage: 10 UNK, UNK

REACTIONS (8)
  - TYPE 2 DIABETES MELLITUS [None]
  - HYPERCHOLESTEROLAEMIA [None]
  - PNEUMONIA [None]
  - HYPERTENSION [None]
  - LIVER FUNCTION TEST ABNORMAL [None]
  - WHITE BLOOD CELL COUNT INCREASED [None]
  - NEUROLEPTIC MALIGNANT SYNDROME [None]
  - SLEEP APNOEA SYNDROME [None]
